FAERS Safety Report 10202529 (Version 1)
Quarter: 2014Q2

REPORT INFORMATION
  Report Type: Spontaneous
  Country: DE (occurrence: DE)
  Receive Date: 20140528
  Receipt Date: 20140528
  Transmission Date: 20141212
  Serious: Yes (Congenital Anomaly)
  Sender: FDA-Public Use
  Company Number: DE-TEVA-482867GER

PATIENT
  Sex: Male

DRUGS (5)
  1. CIPROFLOXACIN [Suspect]
     Route: 064
  2. KEPINOL FORTE [Suspect]
     Route: 064
  3. CITALOPRAM [Concomitant]
     Route: 064
  4. AMOXICILLIN [Concomitant]
     Route: 064
  5. FEMIBION [Concomitant]
     Route: 064

REACTIONS (1)
  - Spina bifida [Not Recovered/Not Resolved]
